FAERS Safety Report 5962252-6 (Version None)
Quarter: 2008Q4

REPORT INFORMATION
  Report Type: 
  Country: None (occurrence: None)
  Receive Date: 20081121
  Receipt Date: 20081117
  Transmission Date: 20090506
  Serious: No
  Sender: FDA-Public Use
  Company Number: US-B.I. PHARMACEUTICALS,INC./RIDGEFIELD-2008-BP-13566BP

PATIENT
  Sex: Male

DRUGS (1)
  1. MIRAPEX [Suspect]
     Indication: RESTLESS LEGS SYNDROME
     Dosage: 3.5MG
     Dates: end: 20080801

REACTIONS (5)
  - ANXIETY [None]
  - HYPERPHAGIA [None]
  - PAIN [None]
  - PATHOLOGICAL GAMBLING [None]
  - WEIGHT INCREASED [None]
